FAERS Safety Report 18947155 (Version 1)
Quarter: 2021Q1

REPORT INFORMATION
  Report Type: Spontaneous
  Country: US (occurrence: US)
  Receive Date: 20210226
  Receipt Date: 20210226
  Transmission Date: 20210420
  Serious: Yes (Other)
  Sender: FDA-Public Use
  Company Number: US-MYLANLABS-2021M1009405

PATIENT
  Sex: Male
  Weight: 107 kg

DRUGS (1)
  1. MUSE [Suspect]
     Active Substance: ALPROSTADIL
     Indication: ERECTILE DYSFUNCTION
     Dosage: TWICE
     Route: 066

REACTIONS (4)
  - Product label issue [Unknown]
  - Penis disorder [Not Recovered/Not Resolved]
  - Genital pain [Not Recovered/Not Resolved]
  - Drug ineffective [Not Recovered/Not Resolved]
